FAERS Safety Report 9778298 (Version 2)
Quarter: 2013Q4

REPORT INFORMATION
  Report Type: Report from Study
  Country: FR (occurrence: FR)
  Receive Date: 20131223
  Receipt Date: 20131223
  Transmission Date: 20140711
  Serious: Yes (Death, Hospitalization)
  Sender: FDA-Public Use
  Company Number: FR-ELI_LILLY_AND_COMPANY-FR201307006702

PATIENT
  Age: 67 Year
  Sex: Male
  Weight: 58 kg

DRUGS (11)
  1. PEMETREXED [Suspect]
     Indication: LUNG NEOPLASM MALIGNANT
     Dosage: 500 MG/M2, EVERY 21 DAYS
     Route: 042
     Dates: start: 20121026
  2. FOLIC ACID [Concomitant]
     Indication: PREMEDICATION
     Dosage: UNK
     Dates: start: 20121028
  3. VITAMIN B12 [Concomitant]
     Indication: PREMEDICATION
     Dosage: UNK
     Dates: start: 20121028
  4. DEXAMETHASONE [Concomitant]
     Indication: PREMEDICATION
     Dosage: UNK
     Dates: start: 20121028
  5. CARBOPLATIN [Concomitant]
     Indication: NEOPLASM MALIGNANT
     Dosage: UNK
     Dates: start: 20121028
  6. ATARAX [Concomitant]
     Dosage: UNK
     Dates: start: 20110928
  7. INEXIUM [Concomitant]
     Dosage: UNK
     Dates: start: 20110928
  8. DUROGESIC [Concomitant]
     Dosage: UNK
     Dates: start: 20121026
  9. DEROXAT [Concomitant]
     Indication: DEPRESSION
     Dosage: UNK
     Dates: start: 20121116
  10. EMEND [Concomitant]
     Dosage: UNK
  11. GLUCOZIDE [Concomitant]
     Dosage: UNK

REACTIONS (2)
  - Aspiration [Fatal]
  - Pancytopenia [Not Recovered/Not Resolved]
